FAERS Safety Report 10339456 (Version 2)
Quarter: 2014Q4

REPORT INFORMATION
  Report Type: Spontaneous
  Country: US (occurrence: US)
  Receive Date: 20140724
  Receipt Date: 20141007
  Transmission Date: 20150528
  Serious: Yes (Other)
  Sender: FDA-Public Use
  Company Number: US-MUNDIPHARMA DS AND PHARMACOVIGILANCE-USA-2014-0115811

PATIENT
  Age: 55 Year
  Sex: Male
  Weight: 95.24 kg

DRUGS (2)
  1. OXYCONTIN [Suspect]
     Active Substance: OXYCODONE HYDROCHLORIDE
     Indication: BACK PAIN
     Dosage: 80 UNK, UNK
     Route: 048
     Dates: start: 2005
  2. OXYCONTIN [Suspect]
     Active Substance: OXYCODONE HYDROCHLORIDE
     Dosage: 100 MG, TID
     Dates: start: 1998

REACTIONS (4)
  - Nephrolithiasis [Recovered/Resolved]
  - Pain [Unknown]
  - Cerebrovascular accident [Recovered/Resolved]
  - Gun shot wound [Recovered/Resolved]

NARRATIVE: CASE EVENT DATE: 201011
